FAERS Safety Report 21297971 (Version 1)
Quarter: 2022Q3

REPORT INFORMATION
  Report Type: Spontaneous
  Country: US (occurrence: None)
  Receive Date: 20220902
  Receipt Date: 20220902
  Transmission Date: 20221027
  Serious: Yes (Hospitalization)
  Sender: FDA-Public Use
  Company Number: None

PATIENT
  Age: 56 Year
  Sex: Female
  Weight: 115 kg

DRUGS (1)
  1. THEOPHYLLINE [Suspect]
     Active Substance: THEOPHYLLINE
     Indication: Pseudohypoparathyroidism
     Dosage: FREQUENCY : DAILY;?
     Route: 048
     Dates: start: 20220203

REACTIONS (4)
  - Device dislocation [None]
  - Bladder spasm [None]
  - Refusal of treatment by patient [None]
  - Urinary tract infection [None]

NARRATIVE: CASE EVENT DATE: 20220825
